FAERS Safety Report 23313017 (Version 1)
Quarter: 2023Q4

REPORT INFORMATION
  Report Type: Spontaneous
  Country: US (occurrence: US)
  Receive Date: 20231219
  Receipt Date: 20231219
  Transmission Date: 20240110
  Serious: No
  Sender: FDA-Public Use
  Company Number: US-RECORDATI-2023003521

PATIENT

DRUGS (1)
  1. SIGNIFOR LAR [Suspect]
     Active Substance: PASIREOTIDE PAMOATE
     Indication: Product used for unknown indication
     Dosage: 20 MILLIGRAM, QM
     Dates: start: 20201029

REACTIONS (1)
  - Insulin-like growth factor increased [Unknown]

NARRATIVE: CASE EVENT DATE: 20230428
